FAERS Safety Report 5246823-0 (Version None)
Quarter: 2007Q1

REPORT INFORMATION
  Report Type: 
  Country: None (occurrence: None)
  Receive Date: 20070226
  Receipt Date: 20070214
  Transmission Date: 20070707
  Serious: Yes (Other)
  Sender: FDA-Public Use
  Company Number: US-PFIZER INC-2007013838

PATIENT
  Sex: Male
  Weight: 93 kg

DRUGS (2)
  1. GABAPENTIN [Suspect]
     Indication: NEUROPATHY
  2. GABAPENTIN [Suspect]
     Indication: VENOUS INSUFFICIENCY

REACTIONS (7)
  - ACTIVITIES OF DAILY LIVING IMPAIRED [None]
  - ASTHENOPIA [None]
  - DISTURBANCE IN ATTENTION [None]
  - DIZZINESS [None]
  - DYSPEPSIA [None]
  - FEELING ABNORMAL [None]
  - NAUSEA [None]
